FAERS Safety Report 16978095 (Version 10)
Quarter: 2021Q4

REPORT INFORMATION
  Report Type: Spontaneous
  Country: GB (occurrence: GB)
  Receive Date: 20191031
  Receipt Date: 20211227
  Transmission Date: 20220303
  Serious: Yes (Hospitalization, Other)
  Sender: FDA-Public Use
  Company Number: GB-MYLANLABS-2019M1098434

PATIENT
  Age: 58 Year
  Sex: Male

DRUGS (8)
  1. MEROPENEM [Suspect]
     Active Substance: MEROPENEM
     Indication: Sepsis
     Dosage: UNK
     Route: 065
     Dates: start: 2019
  2. MEROPENEM [Suspect]
     Active Substance: MEROPENEM
     Dosage: 1 GRAM
     Route: 042
     Dates: start: 20191013
  3. MEROPENEM [Suspect]
     Active Substance: MEROPENEM
     Dosage: 1 G, TID (1 GRAM, 3 TIMES A DAY,(3 G,1 DAY)
     Route: 042
     Dates: start: 20191013
  4. MEROPENEM [Suspect]
     Active Substance: MEROPENEM
     Dosage: 3 GRAM, ONCE A DAY (1 GRAM, TID)
     Route: 042
  5. ONDANSETRON [Suspect]
     Active Substance: ONDANSETRON
     Indication: Nausea
     Dosage: 8 MILLIGRAM
     Route: 042
     Dates: start: 2019
  6. ONDANSETRON [Suspect]
     Active Substance: ONDANSETRON
     Dosage: 8 MILLIGRAM
     Route: 042
     Dates: start: 20191012
  7. ONDANSETRON [Suspect]
     Active Substance: ONDANSETRON
     Dosage: 8 MILLIGRAM
     Route: 042
     Dates: start: 20191013
  8. MEROPENEM [Concomitant]
     Active Substance: MEROPENEM
     Indication: Sepsis
     Dosage: 1 GRAM, 3 TIMES A DAY,(3 G,1 DAY)
     Route: 042

REACTIONS (6)
  - Peripheral swelling [Unknown]
  - Injection site extravasation [Recovering/Resolving]
  - Catheter site pain [Recovering/Resolving]
  - Injection site pain [Recovering/Resolving]
  - Injection site swelling [Recovering/Resolving]
  - Extravasation [Recovering/Resolving]

NARRATIVE: CASE EVENT DATE: 20191015
